FAERS Safety Report 8764291 (Version 1)
Quarter: 2012Q4

REPORT INFORMATION
  Report Type: Report from Study
  Country: BR (occurrence: BR)
  Receive Date: 20120831
  Receipt Date: 20120831
  Transmission Date: 20130627
  Serious: Yes (Other)
  Sender: FDA-Public Use
  Company Number: BR-PFIZER INC-2012212526

PATIENT
  Age: 66 Year
  Sex: Male
  Weight: 70 kg

DRUGS (4)
  1. LIPITOR [Suspect]
     Indication: BLOOD CHOLESTEROL
     Dosage: 10 mg, 2x/day
     Route: 048
     Dates: start: 2003
  2. AMLODIPINE [Concomitant]
     Indication: HYPERTENSION
     Dosage: 1 DF, 1x/daily
     Dates: start: 2003
  3. AAS INFANTIL [Concomitant]
     Dosage: 1 DF, 1x/day
     Dates: start: 2006
  4. PANTOPRAZOLE [Concomitant]
     Indication: DYSPEPSIA
     Dosage: 1 DF, 1x/day
     Dates: start: 2007

REACTIONS (1)
  - Cardiac disorder [Unknown]
